FAERS Safety Report 9104275 (Version 1)
Quarter: 2013Q1

REPORT INFORMATION
  Report Type: Spontaneous
  Country: CA (occurrence: CA)
  Receive Date: 20130220
  Receipt Date: 20130220
  Transmission Date: 20140127
  Serious: Yes (Other)
  Sender: FDA-Public Use
  Company Number: CA-US-EMD SERONO, INC.-7194359

PATIENT
  Age: 56 Year
  Sex: Male

DRUGS (1)
  1. REBIF [Suspect]
     Indication: MULTIPLE SCLEROSIS
     Route: 058
     Dates: start: 20130131, end: 201302

REACTIONS (4)
  - Pyrexia [Recovered/Resolved]
  - Paralysis [Unknown]
  - Abasia [Recovered/Resolved]
  - Incorrect dose administered [Recovered/Resolved]
